FAERS Safety Report 19911922 (Version 1)
Quarter: 2021Q4

REPORT INFORMATION
  Report Type: Spontaneous
  Country: US (occurrence: US)
  Receive Date: 20211002
  Receipt Date: 20211002
  Transmission Date: 20220303
  Serious: Yes (Hospitalization)
  Sender: FDA-Public Use
  Company Number: None

PATIENT
  Sex: Male
  Weight: 58 kg

DRUGS (13)
  1. CYCLOPHOSPHAMIDE [Suspect]
     Active Substance: CYCLOPHOSPHAMIDE
  2. CYTARABINE [Concomitant]
     Active Substance: CYTARABINE
  3. DAUNORUBICIN [Concomitant]
     Active Substance: DAUNORUBICIN
  4. MERCAPTOPURINE [Concomitant]
     Active Substance: MERCAPTOPURINE
  5. METHOTREXATE [Concomitant]
     Active Substance: METHOTREXATE
  6. ONCASPAR [Concomitant]
     Active Substance: PEGASPARGASE
  7. VINCRISTINE SULFATE [Concomitant]
     Active Substance: VINCRISTINE SULFATE
  8. NAC1 [Concomitant]
  9. GABAPENTIN [Concomitant]
     Active Substance: GABAPENTIN
  10. MORPHINE [Concomitant]
     Active Substance: MORPHINE
  11. ONDANSETRON [Concomitant]
     Active Substance: ONDANSETRON
  12. OXYCODONE [Concomitant]
     Active Substance: OXYCODONE
  13. PIPERACILLIN AND TAZOBACTAM [Concomitant]
     Active Substance: PIPERACILLIN SODIUM\TAZOBACTAM SODIUM

REACTIONS (4)
  - Fall [None]
  - Head injury [None]
  - Loss of consciousness [None]
  - Appendicitis [None]

NARRATIVE: CASE EVENT DATE: 20210930
